FAERS Safety Report 20634625 (Version 1)
Quarter: 2022Q1

REPORT INFORMATION
  Report Type: Report from Study
  Country: CA (occurrence: CA)
  Receive Date: 20220325
  Receipt Date: 20220325
  Transmission Date: 20220423
  Serious: Yes (Other)
  Sender: FDA-Public Use
  Company Number: CA-JNJFOC-20220141617

PATIENT
  Age: 31 Year
  Sex: Female
  Weight: 61.7 kg

DRUGS (2)
  1. STELARA [Suspect]
     Active Substance: USTEKINUMAB
     Indication: Crohn^s disease
     Route: 058
     Dates: start: 20210415
  2. STELARA [Suspect]
     Active Substance: USTEKINUMAB

REACTIONS (6)
  - Abscess intestinal [Not Recovered/Not Resolved]
  - Abdominal pain [Unknown]
  - Frequent bowel movements [Unknown]
  - Nausea [Unknown]
  - Fatigue [Unknown]
  - Abnormal faeces [Unknown]

NARRATIVE: CASE EVENT DATE: 20220101
